FAERS Safety Report 5232555-1 (Version None)
Quarter: 2007Q1

REPORT INFORMATION
  Report Type: 
  Country: None (occurrence: None)
  Receive Date: 20070207
  Receipt Date: 20070130
  Transmission Date: 20070707
  Serious: Yes (Other)
  Sender: FDA-Public Use
  Company Number: DE-GLAXOSMITHKLINE-B0457210A

PATIENT
  Age: 60 Year
  Sex: Female

DRUGS (4)
  1. QUERTO [Suspect]
     Indication: DRUG USE FOR UNKNOWN INDICATION
     Dosage: 2TAB PER DAY
  2. MIRTAZAPINE [Concomitant]
  3. NORVASC [Concomitant]
  4. DELIX 5 PLUS [Concomitant]

REACTIONS (2)
  - ANGIOEDEMA [None]
  - HYPERSENSITIVITY [None]
